FAERS Safety Report 13190605 (Version 6)
Quarter: 2017Q2

REPORT INFORMATION
  Report Type: Report from Study
  Country: US (occurrence: US)
  Receive Date: 20170206
  Receipt Date: 20170621
  Transmission Date: 20170830
  Serious: Yes (Death, Hospitalization, Other)
  Sender: FDA-Public Use
  Company Number: US-009507513-1701USA014315

PATIENT
  Age: 70 Year
  Sex: Female

DRUGS (13)
  1. PEMBROLIZUMAB. [Suspect]
     Active Substance: PEMBROLIZUMAB
     Indication: NON-SMALL CELL LUNG CANCER STAGE IV
     Dosage: 200 MG, EVERY 3 WEEKS
     Route: 042
     Dates: start: 20170124, end: 20170124
  2. CALCIUM (UNSPECIFIED) [Concomitant]
     Active Substance: CALCIUM
     Dosage: UNK
  3. VITAMIN D [Concomitant]
     Active Substance: CHOLECALCIFEROL
  4. PEMBROLIZUMAB. [Suspect]
     Active Substance: PEMBROLIZUMAB
     Dosage: 200 MG, EVERY 3 WEEKS
     Route: 042
     Dates: start: 20170422, end: 20170422
  5. DECADRON [Suspect]
     Active Substance: DEXAMETHASONE
     Dosage: 4 MG, EVERY 6 HOURS
     Dates: start: 201703
  6. PROLIA [Concomitant]
     Active Substance: DENOSUMAB
     Dosage: UNK
  7. ZOCOR [Concomitant]
     Active Substance: SIMVASTATIN
     Dosage: UNK
     Route: 048
  8. PEMBROLIZUMAB. [Suspect]
     Active Substance: PEMBROLIZUMAB
     Dosage: 200 MG, EVERY 3 WEEKS
     Route: 042
     Dates: start: 20170303, end: 20170303
  9. PEMBROLIZUMAB. [Suspect]
     Active Substance: PEMBROLIZUMAB
     Dosage: 200 MG, EVERY 3 WEEKS
     Route: 042
     Dates: start: 20170324, end: 20170324
  10. KEPPRA [Suspect]
     Active Substance: LEVETIRACETAM
     Indication: SEIZURE
     Dosage: EVERY 12 HOURS
     Dates: start: 201704
  11. PROBIOTICS (UNSPECIFIED) [Concomitant]
     Active Substance: PROBIOTICS NOS
     Dosage: UNK
  12. GLUCOSAMINE [Concomitant]
     Active Substance: GLUCOSAMINE
     Dosage: UNK
  13. EMERGEN C [Concomitant]
     Active Substance: MINERALS\VITAMINS

REACTIONS (29)
  - Cellulitis [Unknown]
  - Catheter site fibrosis [Unknown]
  - Pneumonia [Not Recovered/Not Resolved]
  - Intestinal ischaemia [Unknown]
  - Seizure [Unknown]
  - Platelet count decreased [Recovering/Resolving]
  - Pruritus [Unknown]
  - Asthenia [Unknown]
  - Death [Fatal]
  - Disseminated intravascular coagulation [Unknown]
  - Nephritis [Unknown]
  - Confusional state [Unknown]
  - Oxygen saturation decreased [Unknown]
  - General physical health deterioration [Unknown]
  - Fatigue [Unknown]
  - Cerebrovascular accident [Unknown]
  - Pulmonary embolism [Unknown]
  - Malignant neoplasm progression [Recovering/Resolving]
  - Somnolence [Unknown]
  - Insomnia [Unknown]
  - Asthenia [Not Recovered/Not Resolved]
  - Deep vein thrombosis [Not Recovered/Not Resolved]
  - Vision blurred [Unknown]
  - Catheter site infection [Recovered/Resolved]
  - Pleural effusion [Not Recovered/Not Resolved]
  - Blood fibrinogen decreased [Unknown]
  - Fibrin D dimer increased [Unknown]
  - Blood lactate dehydrogenase increased [Unknown]
  - Dyspnoea [Not Recovered/Not Resolved]

NARRATIVE: CASE EVENT DATE: 2017
